FAERS Safety Report 8759938 (Version 1)
Quarter: 2012Q4

REPORT INFORMATION
  Report Type: 
  Country: US (occurrence: US)
  Receive Date: 20120829
  Receipt Date: 20120829
  Transmission Date: 20130627
  Serious: Yes (Hospitalization)
  Sender: FDA-Public Use
  Company Number: US-GLAXOSMITHKLINE-A0889010A

PATIENT
  Age: 65 Year
  Sex: Male
  Weight: 132.7 kg

DRUGS (1)
  1. AVANDIA [Suspect]
     Indication: DIABETES MELLITUS
     Dosage: 8MG Per day
     Route: 048
     Dates: start: 200306, end: 200707

REACTIONS (4)
  - Cardiac arrest [Not Recovered/Not Resolved]
  - Myocardial infarction [Unknown]
  - Amnesia [Unknown]
  - Muscle twitching [Unknown]
